FAERS Safety Report 13421505 (Version 1)
Quarter: 2017Q2

REPORT INFORMATION
  Report Type: Spontaneous
  Country: US (occurrence: US)
  Receive Date: 20170410
  Receipt Date: 20170410
  Transmission Date: 20170830
  Serious: Yes (Other)
  Sender: FDA-Public Use
  Company Number: US-BEH-2017079415

PATIENT
  Sex: Female
  Weight: 46.71 kg

DRUGS (31)
  1. TUDORZA PRESSAIR [Concomitant]
     Active Substance: ACLIDINIUM BROMIDE
  2. HYDROXYCHLOROQUINE [Concomitant]
     Active Substance: HYDROXYCHLOROQUINE
  3. VITAMIN D2 [Concomitant]
     Active Substance: ERGOCALCIFEROL
  4. PLAVIX [Concomitant]
     Active Substance: CLOPIDOGREL BISULFATE
  5. EPIPEN [Concomitant]
     Active Substance: EPINEPHRINE
  6. PROVENTIL [Concomitant]
     Active Substance: ALBUTEROL
  7. OMEPRAZOLE. [Concomitant]
     Active Substance: OMEPRAZOLE
  8. BYSTOLIC [Concomitant]
     Active Substance: NEBIVOLOL HYDROCHLORIDE
  9. FENTANYL. [Concomitant]
     Active Substance: FENTANYL
  10. MORPHINE SULFATE. [Concomitant]
     Active Substance: MORPHINE SULFATE
  11. TRAMADOL. [Concomitant]
     Active Substance: TRAMADOL
  12. ACETAMINOPHEN. [Concomitant]
     Active Substance: ACETAMINOPHEN
  13. TIZANIDINE. [Concomitant]
     Active Substance: TIZANIDINE
  14. LINZESS [Concomitant]
     Active Substance: LINACLOTIDE
  15. FLONASE [Concomitant]
     Active Substance: FLUTICASONE PROPIONATE
  16. GABAPENTIN. [Concomitant]
     Active Substance: GABAPENTIN
  17. MYCOPHENOLATE MOFETIL. [Concomitant]
     Active Substance: MYCOPHENOLATE MOFETIL
  18. HIZENTRA [Suspect]
     Active Substance: HUMAN IMMUNOGLOBULIN G
     Indication: IMMUNODEFICIENCY COMMON VARIABLE
     Dosage: 10 G, UNK
     Route: 058
     Dates: start: 20150728
  19. DIPHENHYDRAMINE. [Concomitant]
     Active Substance: DIPHENHYDRAMINE
  20. ZANAFLEX [Concomitant]
     Active Substance: TIZANIDINE HYDROCHLORIDE
  21. DURAGESIC [Concomitant]
     Active Substance: FENTANYL
  22. CARAFATE [Concomitant]
     Active Substance: SUCRALFATE
  23. OXYGEN. [Concomitant]
     Active Substance: OXYGEN
  24. HIZENTRA [Suspect]
     Active Substance: HUMAN IMMUNOGLOBULIN G
     Dosage: UNK
     Route: 058
  25. FLUTICASONE FUROATE [Concomitant]
     Active Substance: FLUTICASONE FUROATE
  26. ALPRAZOLAM. [Concomitant]
     Active Substance: ALPRAZOLAM
  27. COMPRESSOL [Concomitant]
  28. ONDANSETRON [Concomitant]
     Active Substance: ONDANSETRON
  29. COLACE [Concomitant]
     Active Substance: DOCUSATE SODIUM
  30. LIDOCAINE. [Concomitant]
     Active Substance: LIDOCAINE
     Dosage: 4 %, UNK
     Route: 065
  31. ASPIRIN. [Concomitant]
     Active Substance: ASPIRIN

REACTIONS (1)
  - Catheterisation cardiac [Unknown]
